FAERS Safety Report 4814273-4 (Version None)
Quarter: 2005Q4

REPORT INFORMATION
  Report Type: 
  Country: None (occurrence: None)
  Receive Date: 20051028
  Receipt Date: 20050728
  Transmission Date: 20060501
  Serious: No
  Sender: FDA-Public Use
  Company Number: US-GLAXOSMITHKLINE-A0568105A

PATIENT
  Age: 57 Year
  Sex: Female
  Weight: 68.2 kg

DRUGS (3)
  1. ADVAIR DISKUS 100/50 [Suspect]
     Indication: ASTHMA
     Route: 055
  2. FLONASE [Concomitant]
  3. FOSAMAX [Concomitant]

REACTIONS (1)
  - PARAESTHESIA [None]
